FAERS Safety Report 13900039 (Version 1)
Quarter: 2017Q3

REPORT INFORMATION
  Report Type: Spontaneous
  Country: US (occurrence: US)
  Receive Date: 20170824
  Receipt Date: 20170824
  Transmission Date: 20171127
  Serious: Yes (Life-Threatening, Other)
  Sender: FDA-Public Use
  Company Number: US-PFIZER INC-2017359315

PATIENT
  Age: 22 Year
  Sex: Female

DRUGS (17)
  1. AZITHROMYCIN ANHYDROUS. [Suspect]
     Active Substance: AZITHROMYCIN ANHYDROUS
     Dosage: 250 MG, DAILY
     Route: 048
  2. CIPROFLOXACIN. [Suspect]
     Active Substance: CIPROFLOXACIN
     Indication: PSEUDOMONAS INFECTION
     Dosage: 400 MG, 3X/DAY (EVERY 8 HOURS)
     Route: 042
  3. AZTREONAM. [Concomitant]
     Active Substance: AZTREONAM
     Dosage: 75 MG, 3X/DAY (EVERY 8 HOURS ALTERNATING MONTHLY WITH TOBRAMYCIN INHALED EVERY 12 HOURS)
     Route: 055
  4. AMPHOTERICIN [Concomitant]
     Active Substance: AMPHOTERICIN B
     Dosage: 20 MG, 1X/DAY
     Route: 055
  5. AZITHROMYCIN ANHYDROUS. [Suspect]
     Active Substance: AZITHROMYCIN ANHYDROUS
     Dosage: 250 MG, 1X/DAY
     Route: 042
  6. CEFOXITIN [Concomitant]
     Active Substance: CEFOXITIN SODIUM
     Indication: PROPHYLAXIS
     Dosage: 2 G, 3X/DAY (EVERY 8 HOURS)
     Route: 042
  7. TIGECYCLINE. [Concomitant]
     Active Substance: TIGECYCLINE
     Indication: MYCOBACTERIUM ABSCESSUS INFECTION
     Dosage: 50 MG, DAILY
     Route: 042
  8. TOBRAMYCIN. [Concomitant]
     Active Substance: TOBRAMYCIN
     Dosage: UNK, 2X/DAY ( 75 MG INHALED EVERY 8 HOURS ALTERNATING MONTHLY WITH TOBRAMYCIN INHALED EVERY 12 HOURS
     Route: 055
  9. TIGECYCLINE. [Concomitant]
     Active Substance: TIGECYCLINE
     Indication: PROPHYLAXIS
     Dosage: 100 MG, DAILY
     Route: 042
  10. ONDANSETRON [Concomitant]
     Active Substance: ONDANSETRON
     Dosage: 8 MG, 3X/DAY, (EVERY 8 HOURS)
     Route: 048
  11. VORICONAZOLE. [Suspect]
     Active Substance: VORICONAZOLE
     Dosage: 200 MG, 2X/DAY (EVERY 12 HOURS)
     Route: 042
  12. ETOMIDATE. [Suspect]
     Active Substance: ETOMIDATE
     Indication: INDUCTION OF ANAESTHESIA
     Dosage: UNK
  13. CLOFAZIMINE [Concomitant]
     Active Substance: CLOFAZIMINE
     Dosage: 50 MG, DAILY
     Route: 048
  14. ROCURONIUM BROMIDE. [Suspect]
     Active Substance: ROCURONIUM BROMIDE
     Indication: INDUCTION OF ANAESTHESIA
     Dosage: UNK
  15. PROPOFOL. [Suspect]
     Active Substance: PROPOFOL
     Indication: INDUCTION OF ANAESTHESIA
     Dosage: UNK
  16. CEFEPIME [Concomitant]
     Active Substance: CEFEPIME HYDROCHLORIDE
     Indication: PSEUDOMONAS INFECTION
     Dosage: 2 G, 2X/DAY (EVERY 12 HOURS)
     Route: 042
  17. CEFOXITIN [Concomitant]
     Active Substance: CEFOXITIN SODIUM
     Indication: MYCOBACTERIUM ABSCESSUS INFECTION
     Dosage: 2 G, 3X/DAY ( EVERY 8 HOURS)
     Route: 042

REACTIONS (1)
  - Electrocardiogram QT prolonged [Recovered/Resolved]
